FAERS Safety Report 7581345-3 (Version None)
Quarter: 2011Q2

REPORT INFORMATION
  Report Type: 
  Country: None (occurrence: None)
  Receive Date: 20110629
  Receipt Date: 20110620
  Transmission Date: 20111010
  Serious: Yes (Hospitalization, Other)
  Sender: FDA-Public Use
  Company Number: US-ASTRAZENECA-2009SE07728

PATIENT
  Age: 59 Year
  Sex: Male
  Weight: 88 kg

DRUGS (5)
  1. SEROQUEL [Suspect]
     Indication: BIPOLAR DISORDER
     Route: 048
  2. SEROQUEL [Suspect]
     Indication: SLEEP DISORDER
     Route: 048
  3. LAMOTRIGINE [Concomitant]
  4. PERCOCET [Concomitant]
  5. DIAZEPAM [Concomitant]

REACTIONS (9)
  - ACCIDENT AT WORK [None]
  - BACK INJURY [None]
  - INTERNAL FIXATION OF SPINE [None]
  - CEREBRAL ATROPHY [None]
  - ABDOMINAL PAIN UPPER [None]
  - INTERVERTEBRAL DISC PROTRUSION [None]
  - SUICIDAL IDEATION [None]
  - DIZZINESS [None]
  - WEIGHT INCREASED [None]
